FAERS Safety Report 14198666 (Version 2)
Quarter: 2017Q4

REPORT INFORMATION
  Report Type: Spontaneous
  Country: FI (occurrence: FI)
  Receive Date: 20171117
  Receipt Date: 20171130
  Transmission Date: 20180321
  Serious: Yes (Other)
  Sender: FDA-Public Use
  Company Number: FI-SUN PHARMACEUTICAL INDUSTRIES LTD-2017RR-154919

PATIENT
  Sex: Male

DRUGS (2)
  1. ESOMEPRAZOL ORION [Suspect]
     Active Substance: ESOMEPRAZOLE MAGNESIUM
     Indication: OESOPHAGEAL ULCER
  2. ESOMEPRAZOL ORION [Suspect]
     Active Substance: ESOMEPRAZOLE MAGNESIUM
     Indication: OESOPHAGITIS
     Dosage: 20 MG, QID
     Route: 048

REACTIONS (6)
  - Alopecia [Unknown]
  - Blood glucose increased [Unknown]
  - Heart rate increased [Unknown]
  - Insomnia [Unknown]
  - Prostatic specific antigen increased [Recovering/Resolving]
  - Dry mouth [Unknown]
